FAERS Safety Report 8529906-9 (Version None)
Quarter: 2012Q3

REPORT INFORMATION
  Report Type: 
  Country: None (occurrence: None)
  Receive Date: 20120723
  Receipt Date: 20120716
  Transmission Date: 20120928
  Serious: Yes (Life-Threatening, Hospitalization)
  Sender: FDA-Public Use
  Company Number: US-JNJFOC-20110103556

PATIENT
  Age: 65 Year
  Sex: Male

DRUGS (5)
  1. LEVOFLOXACIN [Suspect]
     Indication: OESOPHAGEAL PERFORATION
     Route: 042
  2. METRONIDAZOLE [Suspect]
     Indication: OESOPHAGEAL PERFORATION
     Route: 042
  3. FLUCONAZOLE [Suspect]
     Indication: OESOPHAGEAL PERFORATION
     Route: 042
  4. VANCOMYCIN [Suspect]
     Indication: OESOPHAGEAL PERFORATION
     Route: 042
  5. ORAL HYPOGLYCEMIC NOS [Concomitant]
     Indication: HYPOGLYCAEMIA
     Route: 048

REACTIONS (2)
  - DRUG RASH WITH EOSINOPHILIA AND SYSTEMIC SYMPTOMS [None]
  - MULTI-ORGAN FAILURE [None]
